FAERS Safety Report 6155991-8 (Version None)
Quarter: 2009Q2

REPORT INFORMATION
  Report Type: 
  Country: None (occurrence: None)
  Receive Date: 20090410
  Receipt Date: 20090410
  Transmission Date: 20091009
  Serious: Yes (Hospitalization)
  Sender: FDA-Public Use
  Company Number: None

PATIENT
  Age: 18 Year
  Sex: Male
  Weight: 74.8435 kg

DRUGS (2)
  1. INVEGA [Suspect]
     Indication: ASPERGER'S DISORDER
     Dosage: 3MG ONCE A DAY
     Dates: start: 20090331, end: 20090407
  2. INVEGA [Suspect]
     Indication: AUTISM
     Dosage: 3MG ONCE A DAY
     Dates: start: 20090331, end: 20090407

REACTIONS (2)
  - BRAIN CONTUSION [None]
  - CONVULSION [None]
